FAERS Safety Report 21486627 (Version 1)
Quarter: 2022Q4

REPORT INFORMATION
  Report Type: Spontaneous
  Country: TR (occurrence: TR)
  Receive Date: 20221020
  Receipt Date: 20221020
  Transmission Date: 20230112
  Serious: Yes (Hospitalization)
  Sender: FDA-Public Use
  Company Number: TR-MYLANLABS-2022M1115648

PATIENT
  Age: 52 Year
  Sex: Male

DRUGS (6)
  1. XALATAN [Suspect]
     Active Substance: LATANOPROST
     Indication: Toxic anterior segment syndrome
     Dosage: UNK UNK, QD
     Route: 065
  2. PREDNISOLONE ACETATE [Suspect]
     Active Substance: PREDNISOLONE ACETATE
     Indication: Toxic anterior segment syndrome
     Dosage: UNK UNK, QH
     Route: 061
  3. MOXIFLOXACIN [Suspect]
     Active Substance: MOXIFLOXACIN
     Indication: Toxic anterior segment syndrome
     Dosage: UNK, QH
     Route: 061
  4. PREDNISOLONE [Suspect]
     Active Substance: PREDNISOLONE
     Indication: Toxic anterior segment syndrome
     Dosage: 1 MILLIGRAM/KILOGRAM
     Route: 048
  5. BRINZOLAMIDE\TIMOLOL [Suspect]
     Active Substance: BRINZOLAMIDE\TIMOLOL
     Indication: Toxic anterior segment syndrome
     Dosage: UNK UNK, BID
     Route: 065
  6. ALPHAGAN P [Suspect]
     Active Substance: BRIMONIDINE TARTRATE
     Indication: Toxic anterior segment syndrome
     Dosage: UNK, BID
     Route: 065

REACTIONS (1)
  - Drug ineffective [Unknown]
